FAERS Safety Report 16318137 (Version 4)
Quarter: 2019Q3

REPORT INFORMATION
  Report Type: Spontaneous
  Country: US (occurrence: US)
  Receive Date: 20190516
  Receipt Date: 20190822
  Transmission Date: 20191004
  Serious: Yes (Death, Life-Threatening, Hospitalization, Disabling, Other)
  Sender: FDA-Public Use
  Company Number: US-HORIZON-KRY-0268-2019

PATIENT
  Age: 51 Year
  Sex: Male

DRUGS (3)
  1. KRYSTEXXA [Suspect]
     Active Substance: PEGLOTICASE
     Indication: GOUT
     Dosage: 8 MG Q 2 WEEKS
     Route: 042
     Dates: start: 20190228, end: 20190328
  2. SOLU-MEDROL [Suspect]
     Active Substance: METHYLPREDNISOLONE SODIUM SUCCINATE
     Indication: PRODUCT USED FOR UNKNOWN INDICATION
     Dosage: 125 MG
  3. PREDNISONE. [Concomitant]
     Active Substance: PREDNISONE
     Dosage: 5 MG QD

REACTIONS (12)
  - Gout [Not Recovered/Not Resolved]
  - Myopathy [Not Recovered/Not Resolved]
  - Cardiac failure acute [Fatal]
  - Blood glucose increased [Not Recovered/Not Resolved]
  - Decubitus ulcer [Not Recovered/Not Resolved]
  - Loss of consciousness [Not Recovered/Not Resolved]
  - Endotracheal intubation [Not Recovered/Not Resolved]
  - Renal failure [Not Recovered/Not Resolved]
  - Respiratory failure [Unknown]
  - Necrotising fasciitis [Fatal]
  - Gait inability [Not Recovered/Not Resolved]
  - Escherichia sepsis [Fatal]

NARRATIVE: CASE EVENT DATE: 20190409
